FAERS Safety Report 4586745-1 (Version None)
Quarter: 2005Q1

REPORT INFORMATION
  Report Type: 
  Country: None (occurrence: None)
  Receive Date: 20050218
  Receipt Date: 20041129
  Transmission Date: 20050727
  Serious: Yes (Hospitalization, Other)
  Sender: FDA-Public Use
  Company Number: PHNU2004DE04013

PATIENT
  Age: 54 Year
  Sex: Female
  Weight: 93 kg

DRUGS (7)
  1. TRILEPTAL [Suspect]
     Indication: BIPOLAR DISORDER
     Dosage: 1500 MG/D
     Route: 048
     Dates: start: 20041022, end: 20041129
  2. TRILEPTAL [Suspect]
     Dosage: 1200 MG/D
     Route: 048
     Dates: start: 20041130, end: 20041221
  3. TRILEPTAL [Suspect]
     Dosage: 600 MG/D
     Route: 048
     Dates: start: 20041222, end: 20041224
  4. TRILEPTAL [Suspect]
     Dosage: 900 MG/D
     Route: 048
     Dates: start: 20041021, end: 20041021
  5. RISPERDAL [Concomitant]
     Dosage: 37.5 MG, BIW
  6. DALMADORM [Concomitant]
     Dosage: 0.5 DF/D
  7. TAVOR [Concomitant]

REACTIONS (2)
  - HYPONATRAEMIA [None]
  - MANIA [None]
